FAERS Safety Report 5572109-0 (Version None)
Quarter: 2007Q4

REPORT INFORMATION
  Report Type: 
  Country: None (occurrence: None)
  Receive Date: 20071221
  Receipt Date: 20071210
  Transmission Date: 20080405
  Serious: Yes (Other)
  Sender: FDA-Public Use
  Company Number: US-PFIZER INC-2007092709

PATIENT
  Sex: Male
  Weight: 99.8 kg

DRUGS (4)
  1. LYRICA [Suspect]
     Indication: COMPLEX REGIONAL PAIN SYNDROME
     Dates: start: 20060101, end: 20071030
  2. IBUPROFEN [Concomitant]
  3. NABUMETONE [Concomitant]
  4. ZOLPIDEM [Concomitant]

REACTIONS (9)
  - ARTHROPATHY [None]
  - DIZZINESS [None]
  - DYSPHAGIA [None]
  - EPISTAXIS [None]
  - MUSCULOSKELETAL STIFFNESS [None]
  - MYALGIA [None]
  - SWOLLEN TONGUE [None]
  - TONGUE DISCOLOURATION [None]
  - VISION BLURRED [None]
